FAERS Safety Report 18139038 (Version 1)
Quarter: 2020Q3

REPORT INFORMATION
  Report Type: Spontaneous
  Country: US (occurrence: US)
  Receive Date: 20200812
  Receipt Date: 20200812
  Transmission Date: 20201103
  Serious: No
  Sender: FDA-Public Use
  Company Number: US-BAUSCH-BL-2020-022485

PATIENT
  Age: 87 Year
  Sex: Female
  Weight: 45.4 kg

DRUGS (2)
  1. FLUTICASONE AND SALMETROL [Concomitant]
     Indication: PRODUCT USED FOR UNKNOWN INDICATION
  2. TIMOLOL. [Suspect]
     Active Substance: TIMOLOL
     Indication: GLAUCOMA
     Route: 047

REACTIONS (1)
  - Eye irritation [Unknown]
